FAERS Safety Report 14202482 (Version 12)
Quarter: 2020Q2

REPORT INFORMATION
  Report Type: Report from Study
  Country: AU (occurrence: AU)
  Receive Date: 20171117
  Receipt Date: 20200413
  Transmission Date: 20200713
  Serious: Yes (Hospitalization)
  Sender: FDA-Public Use
  Company Number: AU-JNJFOC-20171119843

PATIENT
  Age: 67 Year
  Sex: Male
  Weight: 80 kg

DRUGS (50)
  1. SODIUM BICARBONATE. [Concomitant]
     Active Substance: SODIUM BICARBONATE
     Indication: PRODUCT USED FOR UNKNOWN INDICATION
     Dates: start: 20170909, end: 20171102
  2. VALACICLOVIR [Concomitant]
     Active Substance: VALACYCLOVIR HYDROCHLORIDE
     Indication: PRODUCT USED FOR UNKNOWN INDICATION
     Route: 048
     Dates: start: 20171027
  3. OLANZAPINE. [Concomitant]
     Active Substance: OLANZAPINE
     Dosage: AT NIGHT
     Dates: start: 201704
  4. PANTOPRAZOLE [Concomitant]
     Active Substance: PANTOPRAZOLE
     Dosage: 40-80MG
     Dates: start: 20171102
  5. BUPRENORPHINE. [Concomitant]
     Active Substance: BUPRENORPHINE
     Dates: start: 20171108
  6. FENTANYL. [Concomitant]
     Active Substance: FENTANYL
     Dosage: 25-75 MICROGRAM
     Dates: start: 20171018, end: 20171026
  7. CARFILZOMIB [Suspect]
     Active Substance: CARFILZOMIB
     Indication: PLASMA CELL MYELOMA
     Route: 042
     Dates: start: 20171025
  8. MOVICOL [Concomitant]
     Active Substance: POLYETHYLENE GLYCOL 3350\POTASSIUM CHLORIDE\SODIUM BICARBONATE\SODIUM CHLORIDE
     Indication: PRODUCT USED FOR UNKNOWN INDICATION
     Dosage: 1 UNSPECIFIED
     Dates: start: 20171027
  9. CALCIUM CARBONATE. [Concomitant]
     Active Substance: CALCIUM CARBONATE
     Indication: PRODUCT USED FOR UNKNOWN INDICATION
     Dosage: 1 UNSPECIFIED
     Dates: start: 20171027
  10. LORATADINE. [Concomitant]
     Active Substance: LORATADINE
     Dates: start: 20171025
  11. ZOMETA [Concomitant]
     Active Substance: ZOLEDRONIC ACID
     Indication: PRODUCT USED FOR UNKNOWN INDICATION
     Dates: start: 2007
  12. MONTELUKAST [Concomitant]
     Active Substance: MONTELUKAST SODIUM
     Route: 048
     Dates: start: 20171025
  13. HALOPERIDOL. [Concomitant]
     Active Substance: HALOPERIDOL
     Dates: start: 20171124, end: 20171219
  14. MAGNESIUM SULFATE. [Concomitant]
     Active Substance: MAGNESIUM SULFATE
     Dosage: 20 UNK
     Dates: start: 20171012
  15. VENLAFAXINE [Concomitant]
     Active Substance: VENLAFAXINE HYDROCHLORIDE
     Indication: PRODUCT USED FOR UNKNOWN INDICATION
     Dates: start: 2015
  16. ROSUVASTATIN. [Concomitant]
     Active Substance: ROSUVASTATIN
     Indication: PRODUCT USED FOR UNKNOWN INDICATION
     Dates: start: 2007
  17. OLANZAPINE. [Concomitant]
     Active Substance: OLANZAPINE
     Indication: PRODUCT USED FOR UNKNOWN INDICATION
     Dosage: AT NIGHT
     Dates: start: 201704
  18. LERCANIDIPINE [Concomitant]
     Active Substance: LERCANIDIPINE
     Dates: start: 20171109
  19. SERETIDE [Concomitant]
     Active Substance: FLUTICASONE PROPIONATE\SALMETEROL XINAFOATE
     Dosage: 250 UNK
     Dates: start: 20171104
  20. FRUSEMIDE                          /00032601/ [Concomitant]
     Active Substance: FUROSEMIDE
     Dates: start: 20171013, end: 20171104
  21. POTASSIUM CHLORIDE. [Concomitant]
     Active Substance: POTASSIUM CHLORIDE
     Dosage: 40 UNK
     Dates: start: 20171014, end: 20171204
  22. ENTONOX [Concomitant]
     Active Substance: NITROUS OXIDE\OXYGEN
     Dosage: 1 UNK
     Dates: start: 20171013, end: 20171013
  23. NORMAL SALINE [Concomitant]
     Active Substance: SODIUM CHLORIDE
     Dates: start: 20171009, end: 20171204
  24. SALBUTAMOL [Concomitant]
     Active Substance: ALBUTEROL
     Indication: PRODUCT USED FOR UNKNOWN INDICATION
     Dates: start: 20171013
  25. ENDONE [Concomitant]
     Active Substance: OXYCODONE HYDROCHLORIDE
     Dates: start: 20171027
  26. MIRTAZAPINE. [Concomitant]
     Active Substance: MIRTAZAPINE
     Indication: PRODUCT USED FOR UNKNOWN INDICATION
     Dates: start: 201704
  27. MACROGOL [Concomitant]
     Active Substance: POLYETHYLENE GLYCOLS
     Dates: start: 20171027
  28. FISH OIL [Concomitant]
     Active Substance: FISH OIL
     Dosage: 2 UNK
     Dates: start: 2007, end: 20171008
  29. ONDANSETRON [Concomitant]
     Active Substance: ONDANSETRON
     Dates: start: 20171025, end: 20171025
  30. PANADOL [Concomitant]
     Active Substance: ACETAMINOPHEN
     Indication: PRODUCT USED FOR UNKNOWN INDICATION
     Dates: start: 201709
  31. PHOSPHATE SANDOZ [Concomitant]
     Active Substance: SODIUM PHOSPHATE, MONOBASIC, ANHYDROUS
     Dosage: 2 UNK
     Dates: start: 20171016, end: 20171201
  32. CHLORVESCENT [Concomitant]
     Active Substance: POTASSIUM CHLORIDE
     Dosage: 2 UNK
     Dates: start: 20171104, end: 20171105
  33. DUODART [Concomitant]
     Active Substance: DUTASTERIDE\TAMSULOSIN
     Dosage: 1 UNK
     Dates: start: 2012, end: 20180108
  34. DARATUMUMAB [Suspect]
     Active Substance: DARATUMUMAB
     Indication: PLASMA CELL MYELOMA
     Route: 042
     Dates: start: 20171025
  35. CARFILZOMIB [Suspect]
     Active Substance: CARFILZOMIB
     Dosage: C3D1
     Route: 042
     Dates: start: 20171220
  36. DEXAMETHASONE. [Suspect]
     Active Substance: DEXAMETHASONE
     Indication: PLASMA CELL MYELOMA
     Dosage: DOSAGE 12-20 MG
     Route: 042
     Dates: start: 20171025, end: 20180315
  37. TARGIN [Concomitant]
     Active Substance: NALOXONE HYDROCHLORIDE\OXYCODONE HYDROCHLORIDE
     Indication: PRODUCT USED FOR UNKNOWN INDICATION
     Dates: start: 201709
  38. ALLOPURINOL. [Concomitant]
     Active Substance: ALLOPURINOL
     Indication: PRODUCT USED FOR UNKNOWN INDICATION
     Dates: start: 20170909, end: 20171102
  39. MAGNESIUM ASPARTATE [Concomitant]
     Active Substance: MAGNESIUM ASPARTATE
     Indication: PRODUCT USED FOR UNKNOWN INDICATION
     Dates: start: 20171027
  40. VENTOLIN [Concomitant]
     Active Substance: ALBUTEROL SULFATE
     Dates: start: 20171102
  41. METHYLPREDNISOLONE. [Concomitant]
     Active Substance: METHYLPREDNISOLONE
     Dates: start: 20171108
  42. VANCOMYCIN [Concomitant]
     Active Substance: VANCOMYCIN
     Route: 042
     Dates: start: 20171201, end: 20171204
  43. ABSTRAL [Concomitant]
     Active Substance: FENTANYL CITRATE
     Dates: start: 20171104, end: 20171108
  44. DARATUMUMAB [Suspect]
     Active Substance: DARATUMUMAB
     Dosage: CYCLE 3 DAY 1 ON 20-DEC-2017
     Route: 042
     Dates: start: 20171213
  45. METOCLOPRAMIDE. [Concomitant]
     Active Substance: METOCLOPRAMIDE
     Indication: PRODUCT USED FOR UNKNOWN INDICATION
     Dates: start: 20171027
  46. ESOMEPRAZOLE. [Concomitant]
     Active Substance: ESOMEPRAZOLE MAGNESIUM
     Indication: PRODUCT USED FOR UNKNOWN INDICATION
     Dates: start: 2012
  47. NORSPAN [Concomitant]
     Active Substance: BUPRENORPHINE
     Dates: start: 20171108
  48. PARACETAMOL [Concomitant]
     Active Substance: ACETAMINOPHEN
     Dosage: 20-1000 MG
     Dates: start: 20171025
  49. HYDROCORTISONE. [Concomitant]
     Active Substance: HYDROCORTISONE
     Dosage: 25-100 MILLIGRAM
     Dates: start: 20171201, end: 20171206
  50. VITAMIN D                          /00107901/ [Concomitant]
     Active Substance: ERGOCALCIFEROL
     Dates: start: 2015, end: 20171008

REACTIONS (3)
  - Upper gastrointestinal haemorrhage [Recovered/Resolved]
  - Hypomania [Recovered/Resolved]
  - Pyrexia [Recovered/Resolved]

NARRATIVE: CASE EVENT DATE: 20171102
